FAERS Safety Report 14343178 (Version 1)
Quarter: 2017Q4

REPORT INFORMATION
  Report Type: Spontaneous
  Country: US (occurrence: US)
  Receive Date: 20171229
  Receipt Date: 20171229
  Transmission Date: 20180321
  Serious: Yes (Death)
  Sender: FDA-Public Use
  Company Number: None

PATIENT
  Age: 79 Year
  Sex: Female
  Weight: 62.3 kg

DRUGS (3)
  1. MORPHINE SULFATE. [Concomitant]
     Active Substance: MORPHINE SULFATE
  2. ONDANSETRON [Concomitant]
     Active Substance: ONDANSETRON
  3. CEFTRIAXONE. [Suspect]
     Active Substance: CEFTRIAXONE
     Indication: URINARY TRACT INFECTION
     Route: 040
     Dates: start: 20171114, end: 20171114

REACTIONS (8)
  - Acute myocardial infarction [None]
  - Pulseless electrical activity [None]
  - Hypotension [None]
  - Respiratory distress [None]
  - Peripheral swelling [None]
  - Ventricular fibrillation [None]
  - Wrong technique in product usage process [None]
  - Cardiac arrest [None]

NARRATIVE: CASE EVENT DATE: 20171115
